FAERS Safety Report 9617824 (Version 1)
Quarter: 2013Q4

REPORT INFORMATION
  Report Type: Spontaneous
  Country: US (occurrence: None)
  Receive Date: 20131009
  Receipt Date: 20131009
  Transmission Date: 20140711
  Serious: Yes (Other)
  Sender: FDA-Public Use
  Company Number: AUR-APL-2013-08240

PATIENT
  Age: 70 Year
  Sex: Male

DRUGS (7)
  1. ALENDRONIC ACID (ALENDRONIC ACID) [Suspect]
     Dates: start: 20130804, end: 20130804
  2. RISEDRONATE (RISEDRONATE) [Suspect]
  3. ADCAL(CARBAZOCHROME) [Concomitant]
  4. BENDROFLUMETHIAZIDE(BENDROFLUMETHIAZIDE) [Concomitant]
  5. GLUCOSAMINE SULPHATE (GLUCOSAMINE SULFATE) [Concomitant]
  6. PARACETAMOL(PARACETAMOL) [Concomitant]
  7. PREDNISOLONE(PREDNISOLONE) [Concomitant]

REACTIONS (6)
  - Conjunctivitis [None]
  - Oral mucosal exfoliation [None]
  - Oral pain [None]
  - Erythema [None]
  - Scab [None]
  - Melanocytic naevus [None]
